FAERS Safety Report 5867523-X (Version None)
Quarter: 2008Q3

REPORT INFORMATION
  Report Type: 
  Country: None (occurrence: None)
  Receive Date: 20080902
  Receipt Date: 20070919
  Transmission Date: 20090109
  Serious: No
  Sender: FDA-Public Use
  Company Number: US-ABBOTT-07P-163-0417207-00

PATIENT
  Sex: Male
  Weight: 102.3 kg

DRUGS (2)
  1. DEPAKOTE ER [Suspect]
     Indication: BIPOLAR DISORDER
     Route: 048
     Dates: start: 20070810, end: 20070908
  2. OXYCODONE SUSTAINED RELEASE [Concomitant]
     Indication: PAIN
     Route: 048
     Dates: start: 20070801

REACTIONS (4)
  - DAYDREAMING [None]
  - HEADACHE [None]
  - VISION BLURRED [None]
  - WEIGHT INCREASED [None]
